FAERS Safety Report 20676600 (Version 3)
Quarter: 2022Q3

REPORT INFORMATION
  Report Type: Spontaneous
  Country: US (occurrence: US)
  Receive Date: 20220406
  Receipt Date: 20220701
  Transmission Date: 20221026
  Serious: No
  Sender: FDA-Public Use
  Company Number: US-drreddys-SPO/USA/22/0148330

PATIENT
  Sex: Female

DRUGS (1)
  1. BUPRENORPHINE\NALOXONE [Suspect]
     Active Substance: BUPRENORPHINE\NALOXONE
     Indication: Pain prophylaxis
     Dosage: 8 MG/ 2 MG
     Route: 060
     Dates: start: 2020

REACTIONS (3)
  - Taste disorder [Unknown]
  - Wrong technique in product usage process [Unknown]
  - Drug ineffective [Unknown]
